FAERS Safety Report 5762255-0 (Version None)
Quarter: 2008Q2

REPORT INFORMATION
  Report Type: 
  Country: None (occurrence: None)
  Receive Date: 20080609
  Receipt Date: 20080527
  Transmission Date: 20081010
  Serious: Yes (Hospitalization)
  Sender: FDA-Public Use
  Company Number: US-ELI_LILLY_AND_COMPANY-US200805005397

PATIENT
  Sex: Female

DRUGS (7)
  1. ZYPREXA [Suspect]
     Indication: SCHIZOPHRENIA
     Dosage: 2.5 MG, EACH EVENING
     Dates: start: 20060101
  2. DEPAKOTE [Concomitant]
  3. TYLENOL                                 /SCH/ [Concomitant]
  4. CALCIUM [Concomitant]
  5. LAXATIVES [Concomitant]
  6. ANTIHYPERTENSIVES [Concomitant]
  7. ATROVENT [Concomitant]

REACTIONS (3)
  - ABNORMAL BEHAVIOUR [None]
  - CHRONIC OBSTRUCTIVE PULMONARY DISEASE [None]
  - REFUSAL OF TREATMENT BY PATIENT [None]
